FAERS Safety Report 6309403-1 (Version None)
Quarter: 2009Q3

REPORT INFORMATION
  Report Type: 
  Country: None (occurrence: None)
  Receive Date: 20090814
  Receipt Date: 20090807
  Transmission Date: 20100115
  Serious: Yes (Other)
  Sender: FDA-Public Use
  Company Number: JP-JNJFOC-20090603522

PATIENT
  Sex: Male
  Weight: 78 kg

DRUGS (4)
  1. DUROTEP MT [Suspect]
     Indication: CANCER PAIN
  2. OPSO [Concomitant]
     Route: 048
  3. OPSO [Concomitant]
     Indication: CANCER PAIN
     Route: 048
  4. OXYCONTIN [Concomitant]
     Route: 048

REACTIONS (1)
  - DELIRIUM [None]
